FAERS Safety Report 24178140 (Version 2)
Quarter: 2024Q3

REPORT INFORMATION
  Report Type: Spontaneous
  Country: US (occurrence: US)
  Receive Date: 20240806
  Receipt Date: 20240813
  Transmission Date: 20241017
  Serious: No
  Sender: ALEMBIC
  Company Number: US-ALEMBIC PHARMACUETICALS LIMITED-2024SCAL001061

PATIENT

DRUGS (1)
  1. ASENAPINE [Suspect]
     Active Substance: ASENAPINE
     Indication: Bipolar disorder
     Dosage: 10 MILLIGRAM, QD
     Route: 060
     Dates: start: 202403, end: 202404

REACTIONS (4)
  - Retching [Recovered/Resolved]
  - Product after taste [Unknown]
  - Product taste abnormal [Unknown]
  - Product solubility abnormal [Unknown]
